FAERS Safety Report 20563364 (Version 1)
Quarter: 2022Q1

REPORT INFORMATION
  Report Type: Spontaneous
  Country: BR (occurrence: BR)
  Receive Date: 20220308
  Receipt Date: 20220308
  Transmission Date: 20220424
  Serious: Yes (Other)
  Sender: FDA-Public Use
  Company Number: BR-CELLTRION INC.-2022BR002525

PATIENT

DRUGS (6)
  1. TRUXIMA [Suspect]
     Active Substance: RITUXIMAB-ABBS
     Indication: Systemic scleroderma
  2. TRUXIMA [Suspect]
     Active Substance: RITUXIMAB-ABBS
     Indication: Pulmonary fibrosis
  3. MYCOPHENOLATE MOFETIL [Concomitant]
     Active Substance: MYCOPHENOLATE MOFETIL
     Dosage: 500 MILLIGRAM (3 TABLETS,TWICE A DAY) (5 YEARS AGO)
     Route: 048
  4. HYDROCORTISONE [Concomitant]
     Active Substance: HYDROCORTISONE
     Dosage: 10 MILLIGRAM, ONCE A DAY (5 YEARS AGO)
     Route: 048
  5. AMLODIPINE BESYLATE [Concomitant]
     Active Substance: AMLODIPINE BESYLATE
     Dosage: UNK, TWICE A DAY (5 YEARS AGO)
     Route: 048
  6. KOIDE D [Concomitant]
     Indication: Cough
     Dosage: UNK, IF NECESSARY (5 YEARS AGO)
     Route: 048

REACTIONS (3)
  - Systemic scleroderma [Unknown]
  - Pulmonary fibrosis [Unknown]
  - Off label use [Unknown]
